FAERS Safety Report 10075441 (Version 1)
Quarter: 2014Q2

REPORT INFORMATION
  Report Type: Spontaneous
  Country: TH (occurrence: TH)
  Receive Date: 20140414
  Receipt Date: 20140414
  Transmission Date: 20141212
  Serious: Yes (Death, Other)
  Sender: FDA-Public Use
  Company Number: TH-ACCORD-023002

PATIENT
  Age: 12 Year
  Sex: Male

DRUGS (5)
  1. SULFAMETHOXAZOLE/TRIMETHOPRIM [Concomitant]
     Indication: URINARY TRACT INFECTION
  2. DILTIAZEM [Concomitant]
     Indication: PRODUCT USED FOR UNKNOWN INDICATION
  3. MYCOPHENOLIC ACID [Suspect]
     Indication: RENAL TRANSPLANT
     Dosage: ALSO RECEIVED 720 MG/D INITIALLY
  4. PREDNISOLONE [Suspect]
     Indication: RENAL TRANSPLANT
     Dosage: ALSO RECEIVED 2.5 MG/D INITIALLY
  5. TACROLIMUS [Suspect]
     Indication: RENAL TRANSPLANT
     Dosage: ALSO RECEIVED 4 MG/D

REACTIONS (4)
  - Histiocytosis haematophagic [Unknown]
  - Pancytopenia [Unknown]
  - Pneumothorax [Unknown]
  - Pneumonia cytomegaloviral [Fatal]
